FAERS Safety Report 26098836 (Version 1)
Quarter: 2025Q4

REPORT INFORMATION
  Report Type: Spontaneous
  Country: EU (occurrence: EU)
  Receive Date: 20251127
  Receipt Date: 20251127
  Transmission Date: 20260117
  Serious: Yes (Other)
  Sender: ALKEM
  Company Number: None

PATIENT
  Age: 43 Year
  Sex: Female

DRUGS (15)
  1. MYCOPHENOLATE MOFETIL [Suspect]
     Active Substance: MYCOPHENOLATE MOFETIL
     Indication: Lupus nephritis
     Dosage: UNK
     Route: 065
  2. MYCOPHENOLATE MOFETIL [Suspect]
     Active Substance: MYCOPHENOLATE MOFETIL
     Dosage: UNK (RECHALLENGE AT LOWER DOSE)
     Route: 065
  3. TACROLIMUS [Suspect]
     Active Substance: TACROLIMUS
     Indication: Immunosuppressant drug therapy
     Dosage: UNK
     Route: 065
  4. BASILIXIMAB [Suspect]
     Active Substance: BASILIXIMAB
     Indication: Immunosuppressant drug therapy
     Dosage: UNK
     Route: 065
  5. BELIMUMAB [Concomitant]
     Active Substance: BELIMUMAB
     Indication: Lupus nephritis
     Dosage: UNK
     Route: 065
  6. BELIMUMAB [Concomitant]
     Active Substance: BELIMUMAB
     Indication: Systemic lupus erythematosus
  7. ELTROMBOPAG [Concomitant]
     Active Substance: ELTROMBOPAG
     Indication: Lupus nephritis
     Dosage: UNK
     Route: 065
  8. ELTROMBOPAG [Concomitant]
     Active Substance: ELTROMBOPAG
     Indication: Thrombocytopenia
  9. HYDROXYCHLOROQUINE [Concomitant]
     Active Substance: HYDROXYCHLOROQUINE
     Indication: Lupus nephritis
     Dosage: UNK
     Route: 065
  10. Immunoglobulins [Concomitant]
     Indication: Lupus nephritis
     Dosage: UNK
     Route: 042
  11. Immunoglobulins [Concomitant]
     Indication: Thrombocytopenia
  12. PREDNISONE [Concomitant]
     Active Substance: PREDNISONE
     Indication: Lupus nephritis
     Dosage: UNK (LOW-DOSE)
     Route: 065
  13. PREDNISONE [Concomitant]
     Active Substance: PREDNISONE
     Indication: Systemic lupus erythematosus
  14. RITUXIMAB [Concomitant]
     Active Substance: RITUXIMAB
     Indication: Lupus nephritis
     Dosage: UNK
     Route: 065
  15. ROMIPLOSTIM [Concomitant]
     Active Substance: ROMIPLOSTIM
     Indication: Thrombocytopenia
     Dosage: UNK
     Route: 065

REACTIONS (3)
  - Transplant rejection [Recovered/Resolved]
  - Delayed graft function [Recovered/Resolved]
  - Gastrointestinal disorder [Unknown]
